FAERS Safety Report 9294432 (Version 1)
Quarter: 2013Q2

REPORT INFORMATION
  Report Type: Report from Study
  Country: RU (occurrence: RU)
  Receive Date: 20130517
  Receipt Date: 20130517
  Transmission Date: 20140414
  Serious: Yes (Other)
  Sender: FDA-Public Use
  Company Number: RU-ROCHE-1225307

PATIENT
  Age: 69 Year
  Sex: Female

DRUGS (4)
  1. AVASTIN [Suspect]
     Indication: RECTOSIGMOID CANCER
     Route: 042
     Dates: start: 20120409, end: 20130515
  2. XELODA [Suspect]
     Indication: RECTOSIGMOID CANCER
     Route: 048
     Dates: start: 20120911, end: 20130108
  3. OXALIPLATIN [Concomitant]
     Indication: RECTOSIGMOID CANCER
     Route: 065
     Dates: start: 20120409, end: 20120911
  4. 5-FLUOROURACIL [Concomitant]
     Indication: RECTOSIGMOID CANCER
     Route: 041
     Dates: start: 20120409, end: 20120911

REACTIONS (1)
  - Disease progression [Not Recovered/Not Resolved]
